FAERS Safety Report 8112121-0 (Version None)
Quarter: 2012Q1

REPORT INFORMATION
  Report Type: 
  Country: None (occurrence: None)
  Receive Date: 20120203
  Receipt Date: 20120201
  Transmission Date: 20120608
  Serious: Yes (Other)
  Sender: FDA-Public Use
  Company Number: JP-PFIZER INC-2011305776

PATIENT
  Age: 80 Year
  Sex: Female
  Weight: 51.3 kg

DRUGS (10)
  1. LYRICA [Suspect]
     Dosage: 75 MG, 1X/DAY
     Route: 048
     Dates: start: 20110928, end: 20111007
  2. BROTIZOLAM [Concomitant]
     Indication: INSOMNIA
     Dosage: 0.25 MG, 1X/DAY
     Route: 048
     Dates: start: 20110921
  3. ASPIRIN [Concomitant]
     Indication: CEREBRAL INFARCTION
     Dosage: 100 MG, 1X/DAY
     Route: 048
     Dates: start: 20111003
  4. CEROCRAL [Concomitant]
     Indication: DIZZINESS
     Dosage: 10 MG, 3X/DAY
     Route: 048
     Dates: start: 20110926
  5. ALLOPURINOL [Concomitant]
     Indication: HYPERURICAEMIA
     Dosage: 100 MG, 1X/DAY
     Route: 048
  6. LYRICA [Suspect]
     Indication: NEURALGIA
     Dosage: 150 MG/DAY
     Route: 048
     Dates: start: 20110927, end: 20110928
  7. DISOPYRAMIDE PHOSPHATE [Suspect]
     Indication: SUPRAVENTRICULAR TACHYCARDIA
     Dosage: 200 MG/DAY
     Route: 048
     Dates: start: 20110914, end: 20110927
  8. LANSOPRAZOLE [Concomitant]
     Indication: GASTROOESOPHAGEAL REFLUX DISEASE
     Dosage: 15 MG, 1X/DAY
     Route: 048
  9. PAXIL [Concomitant]
     Indication: DEPRESSION
     Dosage: 10 MG, 1X/DAY
     Route: 048
     Dates: start: 20110926
  10. MIYA BM [Concomitant]
     Indication: FLATULENCE
     Dosage: 1 DF, 3X/DAY
     Route: 048
     Dates: start: 20110927

REACTIONS (1)
  - NEUROGENIC BLADDER [None]
